APPROVED DRUG PRODUCT: LAMOTRIGINE
Active Ingredient: LAMOTRIGINE
Strength: 5MG
Dosage Form/Route: TABLET, FOR SUSPENSION;ORAL
Application: A078409 | Product #002
Applicant: CHARTWELL RX SCIENCES LLC
Approved: Jan 22, 2009 | RLD: No | RS: No | Type: DISCN